FAERS Safety Report 9705691 (Version 2)
Quarter: 2013Q4

REPORT INFORMATION
  Report Type: Spontaneous
  Country: US (occurrence: US)
  Receive Date: 20131122
  Receipt Date: 20131122
  Transmission Date: 20140711
  Serious: No
  Sender: FDA-Public Use
  Company Number: US-GILEAD-2008-0017531

PATIENT
  Age: 76 Year
  Sex: Female
  Weight: 54.88 kg

DRUGS (10)
  1. LETAIRIS [Suspect]
  2. TOPROL ER [Concomitant]
     Route: 048
  3. LASIX [Concomitant]
     Route: 048
  4. COUMADIN [Concomitant]
     Route: 048
  5. HYDROCODONE [Concomitant]
     Route: 048
  6. LORAZEPAM [Concomitant]
     Route: 048
  7. ALENDRONATE SODIUM [Concomitant]
     Route: 048
  8. METHOTREXATE [Concomitant]
     Route: 048
  9. FOLIC ACID [Concomitant]
     Route: 048
  10. CENTRUM SILVER [Concomitant]
     Route: 048

REACTIONS (1)
  - Generalised oedema [Recovered/Resolved]
